FAERS Safety Report 8960003 (Version 2)
Quarter: 2013Q3

REPORT INFORMATION
  Report Type: Report from Study
  Country: US (occurrence: US)
  Receive Date: 20121212
  Receipt Date: 20130711
  Transmission Date: 20140515
  Serious: Yes (Hospitalization)
  Sender: FDA-Public Use
  Company Number: PHEH2012US024181

PATIENT
  Age: 82 Year
  Sex: Female

DRUGS (24)
  1. GLEEVEC [Suspect]
     Indication: CHRONIC MYELOMONOCYTIC LEUKAEMIA
     Dosage: 400 MG, DAILY
     Route: 048
     Dates: start: 20100405
  2. GLEEVEC [Suspect]
     Dosage: 400 MG , MON-FRI
     Route: 048
  3. PREDNISONE [Concomitant]
     Dosage: UNK UKN, UNK
  4. GLYBURIDE [Concomitant]
     Dosage: UNK UKN, UNK
  5. ENALAPRIL [Concomitant]
     Dosage: UNK UKN, UNK
  6. ATENOLOL [Concomitant]
     Dosage: UNK UKN, UNK
  7. LEVOXYL [Concomitant]
     Dosage: UNK UKN, UNK
  8. CRESTOR [Concomitant]
     Dosage: UNK UKN, UNK
  9. DILTIAZEM [Concomitant]
     Dosage: UNK UKN, UNK
  10. RANITIDINE [Concomitant]
     Dosage: UNK UKN, UNK
  11. IMURAN [Concomitant]
     Dosage: UNK UKN, UNK
  12. JANUVIA [Concomitant]
     Dosage: UNK UKN, UNK
  13. FUROSEMIDE [Concomitant]
     Dosage: UNK UKN, UNK
  14. KLOR-CON [Concomitant]
     Dosage: UNK UKN, UNK
  15. CITALOPRAM HYDROBROMIDE [Concomitant]
     Dosage: UNK UKN, UNK
  16. FOSAMAX [Concomitant]
     Dosage: UNK UKN, UNK
  17. ASPIRIN [Concomitant]
     Dosage: UNK UKN, UNK
  18. FAMOTIDINE [Concomitant]
     Dosage: UNK UKN, UNK
  19. GLIPIZIDE [Concomitant]
     Dosage: UNK UKN, UNK
  20. AZITHROMYCIN [Concomitant]
     Dosage: UNK UKN, UNK
  21. OMEPRAZOLE [Concomitant]
     Dosage: UNK UKN, UNK
  22. GLIMEPIRIDE [Concomitant]
     Dosage: UNK UKN, UNK
  23. VITAMIN D [Concomitant]
     Dosage: UNK UKN, UNK
  24. CLOPIDOGREL [Concomitant]
     Dosage: UNK UKN, UNK

REACTIONS (3)
  - Transient ischaemic attack [Recovered/Resolved]
  - Kidney infection [Recovered/Resolved]
  - Blood glucose abnormal [Recovered/Resolved]
